FAERS Safety Report 16265094 (Version 1)
Quarter: 2019Q2

REPORT INFORMATION
  Report Type: Spontaneous
  Country: US (occurrence: US)
  Receive Date: 20190502
  Receipt Date: 20190502
  Transmission Date: 20190711
  Serious: Yes (Other)
  Sender: FDA-Public Use
  Company Number: US-PFIZER INC-2019179915

PATIENT
  Age: 68 Year
  Sex: Female
  Weight: 104.3 kg

DRUGS (2)
  1. LYRICA [Suspect]
     Active Substance: PREGABALIN
     Indication: PAIN
  2. LYRICA [Suspect]
     Active Substance: PREGABALIN
     Indication: FIBROMYALGIA
     Dosage: 50 MG, 2X/DAY (ONE TABLET IN THE MORNING AND ONE AT BEDTIME)
     Route: 048
     Dates: start: 2019, end: 20190319

REACTIONS (12)
  - Throat tightness [Unknown]
  - Drug withdrawal syndrome [Recovered/Resolved]
  - Pharyngeal swelling [Recovered/Resolved]
  - Chills [Recovered/Resolved]
  - Tremor [Recovered/Resolved]
  - Therapeutic product effect delayed [Unknown]
  - Nausea [Unknown]
  - Paranasal sinus hypersecretion [Unknown]
  - Malaise [Recovered/Resolved]
  - Feeding disorder [Unknown]
  - Dry mouth [Unknown]
  - Dysphagia [Unknown]

NARRATIVE: CASE EVENT DATE: 20190226
